FAERS Safety Report 19820855 (Version 1)
Quarter: 2021Q3

REPORT INFORMATION
  Report Type: Spontaneous
  Country: US (occurrence: US)
  Receive Date: 20210912
  Receipt Date: 20210912
  Transmission Date: 20211014
  Serious: Yes (Other)
  Sender: FDA-Public Use
  Company Number: None

PATIENT
  Age: 58 Year
  Sex: Female
  Weight: 79.38 kg

DRUGS (3)
  1. REGEN?COV [Suspect]
     Active Substance: CASIRIVIMAB\IMDEVIMAB
     Indication: COVID-19 TREATMENT
  2. GRAPEFRUIT SEED EXTRACT [Concomitant]
     Active Substance: GRAPEFRUIT SEED EXTRACT
  3. GAS?X [Concomitant]
     Active Substance: DIMETHICONE

REACTIONS (4)
  - Vision blurred [None]
  - Headache [None]
  - Fatigue [None]
  - Dysarthria [None]

NARRATIVE: CASE EVENT DATE: 20210911
